FAERS Safety Report 8291268-2 (Version None)
Quarter: 2012Q2

REPORT INFORMATION
  Report Type: 
  Country: None (occurrence: None)
  Receive Date: 20120413
  Receipt Date: 20120331
  Transmission Date: 20120825
  Serious: Yes (Other)
  Sender: FDA-Public Use
  Company Number: 2012AP000921

PATIENT
  Age: 10 Year
  Sex: Male

DRUGS (5)
  1. THYMOGLOBULIN [Concomitant]
  2. TACROLIMUS [Suspect]
     Indication: IMMUNOSUPPRESSION
     Dosage: 0.3 MG/KG;QD ; 0.15 MG/KG;QD
  3. DACLIZUMAB [Concomitant]
  4. SOLU-MEDROL [Concomitant]
  5. MYCOPHENOLATE MOFETIL [Suspect]
     Indication: IMMUNOSUPPRESSION

REACTIONS (3)
  - POLYOMAVIRUS-ASSOCIATED NEPHROPATHY [None]
  - BK VIRUS INFECTION [None]
  - VIRAEMIA [None]
